FAERS Safety Report 5035275-1 (Version None)
Quarter: 2006Q2

REPORT INFORMATION
  Report Type: 
  Country: None (occurrence: None)
  Receive Date: 20060522
  Receipt Date: 20060406
  Transmission Date: 20061013
  Serious: Yes (Hospitalization)
  Sender: FDA-Public Use
  Company Number: US-JNJFOC-20060203141

PATIENT
  Age: 82 Year
  Sex: Female
  Weight: 52.1637 kg

DRUGS (1)
  1. RISPERDAL CONSTA [Suspect]
     Indication: PSYCHOTIC DISORDER
     Dosage: 1 IN 2 WEEK, INTRAMUSCULAR
     Route: 030
     Dates: start: 20051101

REACTIONS (2)
  - DRUG ADMINISTRATION ERROR [None]
  - PSYCHOTIC DISORDER [None]
